FAERS Safety Report 8201519-8 (Version None)
Quarter: 2012Q1

REPORT INFORMATION
  Report Type: 
  Country: None (occurrence: None)
  Receive Date: 20120312
  Receipt Date: 20120306
  Transmission Date: 20120608
  Serious: Yes (Other)
  Sender: FDA-Public Use
  Company Number: US-GLAXOSMITHKLINE-A0968831A

PATIENT
  Sex: Female

DRUGS (1)
  1. LOVAZA [Suspect]
     Indication: HEPATIC STEATOSIS
     Dosage: 2G TWICE PER DAY
     Route: 048
     Dates: start: 20110101, end: 20110101

REACTIONS (5)
  - CONSTIPATION [None]
  - OFF LABEL USE [None]
  - MEDICATION RESIDUE [None]
  - ABDOMINAL PAIN [None]
  - FAECALOMA [None]
